FAERS Safety Report 23864699 (Version 2)
Quarter: 2025Q1

REPORT INFORMATION
  Report Type: Spontaneous
  Country: US (occurrence: US)
  Receive Date: 20240516
  Receipt Date: 20250310
  Transmission Date: 20250409
  Serious: No
  Sender: SANOFI AVENTIS
  Company Number: US-SA-SAC20240514000400

PATIENT
  Age: 42 Year
  Sex: Male

DRUGS (2)
  1. DUPIXENT [Suspect]
     Active Substance: DUPILUMAB
     Indication: Dermatitis atopic
     Dosage: 300 MG, QOW
     Route: 058
     Dates: start: 20240518
  2. PRILOSEC OTC [Concomitant]
     Active Substance: OMEPRAZOLE MAGNESIUM

REACTIONS (5)
  - Skin irritation [Recovered/Resolved]
  - Dermatitis atopic [Unknown]
  - Rash [Unknown]
  - Skin discomfort [Unknown]
  - Sleep disorder due to a general medical condition [Unknown]
